FAERS Safety Report 20291245 (Version 1)
Quarter: 2022Q1

REPORT INFORMATION
  Report Type: Spontaneous
  Country: PL (occurrence: PL)
  Receive Date: 20220104
  Receipt Date: 20220104
  Transmission Date: 20220424
  Serious: Yes (Hospitalization, Other)
  Sender: FDA-Public Use
  Company Number: PL-TEVA-2021-PL-1995616

PATIENT
  Age: 17 Year
  Sex: Female

DRUGS (18)
  1. SERTRALINE [Suspect]
     Active Substance: SERTRALINE HYDROCHLORIDE
     Indication: Schizophrenia
     Dosage: 50 MILLIGRAM DAILY;
     Route: 065
  2. OLANZAPINE [Suspect]
     Active Substance: OLANZAPINE
     Indication: Schizophrenia
     Route: 065
  3. RISPERIDONE [Suspect]
     Active Substance: RISPERIDONE
     Indication: Schizophrenia
     Route: 065
  4. LORAZEPAM [Suspect]
     Active Substance: LORAZEPAM
     Indication: Schizophrenia
     Route: 065
  5. PERAZINE [Suspect]
     Active Substance: PERAZINE
     Indication: Schizophrenia
     Route: 065
  6. ARIPIPRAZOLE [Suspect]
     Active Substance: ARIPIPRAZOLE
     Indication: Schizophrenia
     Route: 065
  7. OPIPRAMOL [Suspect]
     Active Substance: OPIPRAMOL
     Indication: Schizophrenia
     Route: 065
  8. CLOZAPINE [Suspect]
     Active Substance: CLOZAPINE
     Indication: Schizophrenia
     Dosage: 200 MILLIGRAM DAILY;
     Route: 065
  9. CLOZAPINE [Suspect]
     Active Substance: CLOZAPINE
     Dosage: 300 MILLIGRAM DAILY;
     Route: 065
  10. CLOZAPINE [Suspect]
     Active Substance: CLOZAPINE
     Dosage: 125 MILLIGRAM DAILY; COMBINED WITH ELECTROCONVULSIVE THERAPY
     Route: 065
  11. DIAZEPAM [Suspect]
     Active Substance: DIAZEPAM
     Indication: Seizure
     Route: 042
  12. DIAZEPAM [Suspect]
     Active Substance: DIAZEPAM
     Route: 042
  13. VALPROIC ACID [Suspect]
     Active Substance: VALPROIC ACID
     Indication: Seizure
     Route: 042
  14. ZUCLOPENTHIXOL [Suspect]
     Active Substance: ZUCLOPENTHIXOL
     Indication: Schizophrenia
     Dosage: 5 MILLIGRAM DAILY;
     Route: 065
  15. ATROPINE [Concomitant]
     Active Substance: ATROPINE
     Indication: Anaesthesia
     Dosage: 0.3-0.5 MG
     Route: 065
  16. THIOPENTAL [Concomitant]
     Active Substance: THIOPENTAL
     Indication: Anaesthesia
     Dosage: 250-300 MG
     Route: 065
  17. SUCCINYLCHOLINE [Concomitant]
     Active Substance: SUCCINYLCHOLINE
     Indication: Anaesthesia
     Dosage: 250-300 MG
     Route: 065
  18. LAMOTRIGINE [Concomitant]
     Active Substance: LAMOTRIGINE
     Indication: Epilepsy
     Dosage: 250-300 MG
     Route: 065

REACTIONS (5)
  - Electroencephalogram abnormal [Unknown]
  - Seizure [Not Recovered/Not Resolved]
  - Muscle tone disorder [Unknown]
  - Drug withdrawal syndrome [Unknown]
  - Drug ineffective [Unknown]
